FAERS Safety Report 5699204-X (Version None)
Quarter: 2008Q2

REPORT INFORMATION
  Report Type: 
  Country: None (occurrence: None)
  Receive Date: 20080407
  Receipt Date: 20080407
  Transmission Date: 20081010
  Serious: No
  Sender: FDA-Public Use
  Company Number: None

PATIENT
  Age: 60 Year
  Sex: Female

DRUGS (7)
  1. MERCAPTOPURINE [Suspect]
     Dates: start: 20070510, end: 20070806
  2. PREDNISONE [Concomitant]
  3. PREMPRO [Concomitant]
  4. LEXAPRO [Concomitant]
  5. IBUPROFEN [Concomitant]
  6. TYLENOL (CAPLET) [Concomitant]
  7. ACIPHEX [Concomitant]

REACTIONS (8)
  - ANTINUCLEAR ANTIBODY POSITIVE [None]
  - CHEST PAIN [None]
  - DIARRHOEA [None]
  - HEADACHE [None]
  - HEPATOTOXICITY [None]
  - HYPERGLYCAEMIA [None]
  - LIVER INJURY [None]
  - PNEUMONIA [None]
